FAERS Safety Report 9894091 (Version 2)
Quarter: 2014Q2

REPORT INFORMATION
  Report Type: Spontaneous
  Country: CA (occurrence: CA)
  Receive Date: 20140213
  Receipt Date: 20140414
  Transmission Date: 20141212
  Serious: Yes (Hospitalization)
  Sender: FDA-Public Use
  Company Number: CA-ELI_LILLY_AND_COMPANY-CA201402001374

PATIENT
  Age: 46 Year
  Sex: Female
  Weight: 87.08 kg

DRUGS (7)
  1. CYMBALTA [Suspect]
     Indication: FIBROMYALGIA
     Dosage: 30 MG, QD
     Route: 048
     Dates: start: 20130925
  2. CYMBALTA [Suspect]
     Indication: DEPRESSION
     Dosage: 60 MG, QD
     Route: 048
     Dates: start: 20131025, end: 20131205
  3. ESTROGEN [Concomitant]
     Route: 065
  4. TECTA [Concomitant]
     Route: 065
  5. SYMBICORT [Concomitant]
     Dosage: 200 UG, UNK
     Route: 065
  6. VENTOLIN                           /00139502/ [Concomitant]
     Route: 065
  7. PROMETRIUM [Concomitant]
     Route: 065

REACTIONS (1)
  - Drug-induced liver injury [Recovered/Resolved]
